FAERS Safety Report 5034242-1 (Version None)
Quarter: 2006Q2

REPORT INFORMATION
  Report Type: 
  Country: None (occurrence: None)
  Receive Date: 20060518
  Receipt Date: 20060217
  Transmission Date: 20061013
  Serious: Yes (Other)
  Sender: FDA-Public Use
  Company Number: 2005165512

PATIENT
  Age: 46 Year
  Sex: Female
  Weight: 58.0604 kg

DRUGS (2)
  1. DEPO-PROVERA [Suspect]
     Indication: ENDOMETRIOSIS
     Dosage: SEE IMAGE
     Dates: start: 19900101, end: 19900101
  2. DEPO-PROVERA [Suspect]
     Indication: ENDOMETRIOSIS
     Dosage: SEE IMAGE
     Dates: start: 20050901, end: 20050901

REACTIONS (10)
  - ARTHRITIS [None]
  - BONE DENSITY DECREASED [None]
  - CANDIDIASIS [None]
  - CHRONIC FATIGUE SYNDROME [None]
  - DEPRESSION [None]
  - FIBROMYALGIA [None]
  - INFECTION PARASITIC [None]
  - MENORRHAGIA [None]
  - PAIN IN EXTREMITY [None]
  - SWELLING [None]
